FAERS Safety Report 21492759 (Version 1)
Quarter: 2022Q4

REPORT INFORMATION
  Report Type: Spontaneous
  Country: US (occurrence: US)
  Receive Date: 20221021
  Receipt Date: 20221021
  Transmission Date: 20230113
  Serious: Yes (Other)
  Sender: FDA-Public Use
  Company Number: US-PFIZER INC-202201243560

PATIENT
  Age: 4 Year
  Sex: Female
  Weight: 12.7 kg

DRUGS (1)
  1. HYDROCORTISONE [Suspect]
     Active Substance: HYDROCORTISONE
     Indication: Hypothalamo-pituitary disorder
     Dosage: 5 MG, DAILY

REACTIONS (2)
  - Septo-optic dysplasia [Unknown]
  - Off label use [Unknown]
